FAERS Safety Report 5198994-2 (Version None)
Quarter: 2006Q4

REPORT INFORMATION
  Report Type: 
  Country: None (occurrence: None)
  Receive Date: 20061016
  Receipt Date: 20060731
  Transmission Date: 20070319
  Serious: No
  Sender: FDA-Public Use
  Company Number: 2006SP002851

PATIENT
  Age: 72 Year
  Sex: Female
  Weight: 68.0396 kg

DRUGS (7)
  1. LUNESTA [Suspect]
     Indication: INSOMNIA
     Dosage: 3MG;HS;ORAL
     Route: 048
     Dates: start: 20060501
  2. ATORVASTATIN CALCIUM [Concomitant]
  3. OGEN [Concomitant]
  4. VITAMIN CAP [Concomitant]
  5. FISH OIL [Concomitant]
  6. ZOLPIDEM TARTRATE [Concomitant]
  7. MOBIC [Concomitant]

REACTIONS (1)
  - PALPITATIONS [None]
